FAERS Safety Report 21379552 (Version 3)
Quarter: 2022Q4

REPORT INFORMATION
  Report Type: Report from Study
  Country: CO (occurrence: CO)
  Receive Date: 20220927
  Receipt Date: 20221006
  Transmission Date: 20230112
  Serious: Yes (Hospitalization)
  Sender: FDA-Public Use
  Company Number: CO-VER-202200036

PATIENT
  Age: 5 Year
  Sex: Female

DRUGS (3)
  1. TRIPTORELIN PAMOATE [Suspect]
     Active Substance: TRIPTORELIN PAMOATE
     Indication: Precocious puberty
     Dosage: 1LIO X FCO LIOFILIZADO PARA SOLUCION ??DRUG START DATE: 25-MAY-2022
     Route: 030
  2. TRIPTORELIN PAMOATE [Suspect]
     Active Substance: TRIPTORELIN PAMOATE
     Indication: Precocious puberty
     Dosage: 1LIO X FCO LIOFILIZADO PARA SOLUCION
     Route: 030
     Dates: start: 20190916, end: 20220425
  3. TRIPTORELIN PAMOATE [Suspect]
     Active Substance: TRIPTORELIN PAMOATE
     Indication: Precocious puberty
     Dosage: 1LIO X FCO LIOFILIZADO PARA SOLUCION
     Route: 030
     Dates: start: 20190916

REACTIONS (3)
  - COVID-19 screening [Not Recovered/Not Resolved]
  - Therapy change [Unknown]
  - Urinary tract infection [Not Recovered/Not Resolved]

NARRATIVE: CASE EVENT DATE: 20220516
